FAERS Safety Report 9297956 (Version 3)
Quarter: 2013Q4

REPORT INFORMATION
  Report Type: Spontaneous
  Country: US (occurrence: US)
  Receive Date: 20130520
  Receipt Date: 20131230
  Transmission Date: 20140711
  Serious: Yes (Hospitalization)
  Sender: FDA-Public Use
  Company Number: US-PFIZER INC-2013151016

PATIENT
  Age: 57 Year
  Sex: Female
  Weight: 102 kg

DRUGS (6)
  1. EFFEXOR XR [Suspect]
     Indication: DEPRESSION
     Dosage: 150 MG DAILY
  2. ZOLOFT [Suspect]
     Indication: DEPRESSION
     Dosage: 50 MG DAILY
  3. ZOLOFT [Suspect]
     Dosage: UNK
  4. LEVOXINE [Suspect]
     Dosage: UNK
  5. HERCEPTIN [Suspect]
     Dosage: UNK
  6. KLONOPIN [Concomitant]
     Dosage: UNK

REACTIONS (12)
  - Breast disorder [Unknown]
  - Neoplasm malignant [Unknown]
  - Liver disorder [Unknown]
  - Blood test abnormal [Unknown]
  - Stress [Unknown]
  - Anxiety [Unknown]
  - Heart rate increased [Unknown]
  - Hypertension [Unknown]
  - Fall [Unknown]
  - Joint injury [Unknown]
  - Vertigo [Unknown]
  - Dizziness [Unknown]
